FAERS Safety Report 9163003 (Version 1)
Quarter: 2013Q1

REPORT INFORMATION
  Report Type: Spontaneous
  Country: US (occurrence: None)
  Receive Date: 20130313
  Receipt Date: 20130313
  Transmission Date: 20140127
  Serious: Yes (Hospitalization)
  Sender: FDA-Public Use
  Company Number: None

PATIENT
  Sex: Female
  Weight: 79.6 kg

DRUGS (4)
  1. MERCAPTOPURINE [Suspect]
  2. METHOTREXATE [Suspect]
  3. VINCRISTINE [Suspect]
  4. DEXAMETHASONE [Suspect]

REACTIONS (3)
  - Pancytopenia [None]
  - Acute myeloid leukaemia [None]
  - Myelodysplastic syndrome [None]
